FAERS Safety Report 20200682 (Version 1)
Quarter: 2021Q4

REPORT INFORMATION
  Report Type: Spontaneous
  Country: CN (occurrence: CN)
  Receive Date: 20211217
  Receipt Date: 20211217
  Transmission Date: 20220303
  Serious: Yes (Hospitalization, Other)
  Sender: FDA-Public Use
  Company Number: CN-ROCHE-2849169

PATIENT
  Age: 53 Year
  Sex: Female

DRUGS (16)
  1. METHOTREXATE SODIUM [Suspect]
     Active Substance: METHOTREXATE SODIUM
     Indication: Diffuse large B-cell lymphoma
     Dosage: 3.5 G/M2, CYCLIC (3.5 G/M2, D1, FIRST CYCLE, CHEMOTHERAPY REGIMEN A)
     Route: 042
     Dates: start: 2018
  2. PREDNISONE [Suspect]
     Active Substance: PREDNISONE
     Indication: Diffuse large B-cell lymphoma
     Dosage: 300 MG, CYCLIC (60 MG, D3-7, FIRST CYCLE, CHEMOTHERAPY REGIMEN A)
     Dates: start: 2018
  3. PREDNISONE [Suspect]
     Active Substance: PREDNISONE
     Dosage: 1500 MG, CYCLIC (60 MG, D3-7, 5 CYCLES, CHEMOTHERAPY REGIMEN B)
     Dates: start: 2018
  4. RITUXIMAB [Suspect]
     Active Substance: RITUXIMAB
     Indication: Diffuse large B-cell lymphoma
     Dosage: 375 MG/M2, CYCLIC (DAY (D) 0, FIRST CYCLE, CHEMOTHERAPY REGIMEN A)
     Dates: start: 2018
  5. RITUXIMAB [Suspect]
     Active Substance: RITUXIMAB
     Dosage: 1875 MG/M2, CYCLIC (375 MG/M2, D0, 5 CYCLES, CHEMOTHERAPY REGIMEN B)
     Dates: start: 2018
  6. VINCRISTINE [Suspect]
     Active Substance: VINCRISTINE
     Indication: Diffuse large B-cell lymphoma
     Dosage: 2 MG, CYCLIC (2 MG, D3, FIRST CYCLE, CHEMOTHERAPY REGIMEN A)
     Dates: start: 2018
  7. VINCRISTINE [Suspect]
     Active Substance: VINCRISTINE
     Dosage: 10 MG, CYCLIC (2 MG, D3, 5 CYCLES, CHEMOTHERAPY REGIMEN B)
     Dates: start: 2018
  8. CYCLOPHOSPHAMIDE [Suspect]
     Active Substance: CYCLOPHOSPHAMIDE
     Indication: Diffuse large B-cell lymphoma
     Dosage: 1.5 G/M2, CYCLIC ( 0.75 G/M2 ONCE PER DAY, D3-4, FIRST CYCLE, CHEMOTHERAPY REGIMEN A)
     Dates: start: 2018
  9. CYCLOPHOSPHAMIDE [Suspect]
     Active Substance: CYCLOPHOSPHAMIDE
     Dosage: 7.5 G/M2, CYCLIC ( 0.75 G/M2 ONCE PER DAY, D3-4, CHEMOTHERAPY REGIMEN B)
     Dates: start: 2018
  10. TENIPOSIDE [Suspect]
     Active Substance: TENIPOSIDE
     Indication: Diffuse large B-cell lymphoma
     Dosage: 975 MG/M2, CYCLIC (65 MG/M2 ONCE A DAY, D1-3, 5 CYCLES, CHEMOTHERAPY REGIMEN B)
     Dates: start: 2018
  11. IBRUTINIB [Suspect]
     Active Substance: IBRUTINIB
     Indication: Diffuse large B-cell lymphoma
     Dosage: 420 MG, 1X/DAY (CHEMOTHERAPY REGIMEN B)
     Dates: start: 2018
  12. FOTEMUSTINE [Suspect]
     Active Substance: FOTEMUSTINE
     Indication: Diffuse large B-cell lymphoma
     Dosage: 700 MG/M2, CYCLIC (140 MG/M2, D3, 5 CYCLES, CHEMOTHERAPY REGIMEN B)
     Dates: start: 2018
  13. TEMOZOLOMIDE [Suspect]
     Active Substance: TEMOZOLOMIDE
     Indication: Diffuse large B-cell lymphoma
     Dosage: 750 MG/M2, CYCLIC (150 MG/M2 ONCE PER DAY, D3-7, FIRST CYCLE, CHEMOTHERAPY REGIMEN A)
     Dates: start: 2018
  14. LEUCOVORIN [Concomitant]
     Active Substance: LEUCOVORIN
     Dosage: UNK
     Dates: start: 2018
  15. RANITIDINE HYDROCHLORIDE [Concomitant]
     Active Substance: RANITIDINE HYDROCHLORIDE
     Dosage: UNK
     Dates: start: 2018
  16. GRANULOCYTE COLONY-STIMULATING FACTOR NOS [Concomitant]
     Active Substance: GRANULOCYTE COLONY-STIMULATING FACTOR NOS
     Dosage: UNK
     Dates: start: 2018

REACTIONS (5)
  - Pneumocystis jirovecii pneumonia [Recovered/Resolved]
  - Respiratory failure [Recovered/Resolved]
  - Haematotoxicity [Unknown]
  - Myelosuppression [Unknown]
  - Fatigue [Unknown]
